FAERS Safety Report 15041723 (Version 1)
Quarter: 2018Q2

REPORT INFORMATION
  Report Type: Spontaneous
  Country: US (occurrence: US)
  Receive Date: 20180621
  Receipt Date: 20180621
  Transmission Date: 20180711
  Serious: No
  Sender: FDA-Public Use
  Company Number: PHEH2018US024710

PATIENT
  Sex: Female

DRUGS (1)
  1. PROMACTA [Suspect]
     Active Substance: ELTROMBOPAG OLAMINE
     Indication: PRODUCT USED FOR UNKNOWN INDICATION
     Dosage: 25 MG, QD
     Route: 048
     Dates: start: 20180213, end: 20180515

REACTIONS (6)
  - Nausea [Unknown]
  - Myalgia [Unknown]
  - Dizziness [Unknown]
  - Pruritus [Recovered/Resolved]
  - Burning sensation [Recovered/Resolved]
  - Arthralgia [Unknown]
